FAERS Safety Report 9593008 (Version 1)
Quarter: 2013Q4

REPORT INFORMATION
  Report Type: Report from Study
  Country: BA (occurrence: BA)
  Receive Date: 20131004
  Receipt Date: 20131004
  Transmission Date: 20140711
  Serious: Yes (Life-Threatening, Hospitalization, Disabling)
  Sender: FDA-Public Use
  Company Number: BA-SA-2013SA098699

PATIENT
  Sex: Male

DRUGS (2)
  1. CABAZITAXEL [Suspect]
     Indication: HORMONE-REFRACTORY PROSTATE CANCER
     Route: 042
  2. PREDNISONE [Suspect]
     Indication: HORMONE-REFRACTORY PROSTATE CANCER
     Route: 048

REACTIONS (1)
  - Hydronephrosis [Not Recovered/Not Resolved]
